FAERS Safety Report 20539850 (Version 1)
Quarter: 2022Q1

REPORT INFORMATION
  Report Type: Spontaneous
  Country: CA (occurrence: CA)
  Receive Date: 20220302
  Receipt Date: 20220302
  Transmission Date: 20220423
  Serious: Yes (Other)
  Sender: FDA-Public Use
  Company Number: CA-JNJFOC-20211109077

PATIENT
  Age: 41 Year
  Sex: Female
  Weight: 82 kg

DRUGS (3)
  1. REMICADE [Suspect]
     Active Substance: INFLIXIMAB
     Indication: Colitis ulcerative
     Route: 042
  2. HYDROCORTISONE [Concomitant]
     Active Substance: HYDROCORTISONE
     Indication: Premedication
  3. IRON [Concomitant]
     Active Substance: IRON

REACTIONS (3)
  - Malaise [Unknown]
  - Pyrexia [Unknown]
  - Inappropriate schedule of product administration [Unknown]
